FAERS Safety Report 8265978-7 (Version None)
Quarter: 2012Q2

REPORT INFORMATION
  Report Type: 
  Country: None (occurrence: None)
  Receive Date: 20120403
  Receipt Date: 20120319
  Transmission Date: 20120825
  Serious: Yes (Hospitalization, Other)
  Sender: FDA-Public Use
  Company Number: US-2011-10884

PATIENT
  Age: 52 Year
  Sex: Female

DRUGS (10)
  1. OLMESARTAN (OLMESARTAN MEDOXOMIL) [Concomitant]
  2. BUSCOPAN PLUS (HYOSCINE BUTYLBROMIDE, PARACETAMOL) [Concomitant]
  3. IBUPROFEN [Concomitant]
  4. ASCORBINSAEURE (ASCORBIC ACID) [Concomitant]
  5. AMLODIPIN (AMLODIPIN) [Concomitant]
  6. ASPIRIN [Concomitant]
  7. TARGIN (NALOXONE HYDROCHLORIDE, OXYCODONE HYDROCHLORIDE) [Concomitant]
  8. ATACAND [Concomitant]
  9. SAMSCA [Suspect]
     Indication: CONGENITAL CYSTIC KIDNEY DISEASE
     Dosage: 45/15 MG  SPLIT DOSE, ORAL
     Route: 048
     Dates: start: 20110427, end: 20111021
  10. ACETAMINOPHEN [Concomitant]

REACTIONS (6)
  - ALANINE AMINOTRANSFERASE INCREASED [None]
  - FEBRILE INFECTION [None]
  - BLOOD ALKALINE PHOSPHATASE INCREASED [None]
  - HEPATIC CYST [None]
  - GAMMA-GLUTAMYLTRANSFERASE INCREASED [None]
  - INFECTED CYST [None]
